FAERS Safety Report 5021581-3 (Version None)
Quarter: 2006Q2

REPORT INFORMATION
  Report Type: 
  Country: None (occurrence: None)
  Receive Date: 20060608
  Receipt Date: 20060516
  Transmission Date: 20061013
  Serious: Yes (Death, Other)
  Sender: FDA-Public Use
  Company Number: BH-ABBOTT-06P-011-0334719-00

PATIENT
  Age: 3 Month
  Sex: Male
  Weight: 2 kg

DRUGS (11)
  1. SEVORANE LIQUID FOR INHALATION [Suspect]
     Indication: INDUCTION OF ANAESTHESIA
     Route: 055
     Dates: start: 20060507, end: 20060507
  2. SEVORANE LIQUID FOR INHALATION [Suspect]
     Indication: MAINTENANCE OF ANAESTHESIA
     Route: 055
     Dates: start: 20060507, end: 20060507
  3. SEVORANE LIQUID FOR INHALATION [Suspect]
     Route: 055
     Dates: start: 20060507, end: 20060507
  4. KETAMINE HCL [Concomitant]
     Indication: ANAESTHESIA
     Dates: start: 20060507, end: 20060507
  5. ATRACURIUM BESYLATE [Concomitant]
     Indication: ANAESTHESIA
     Dates: start: 20060507, end: 20060507
  6. NEOSTIGMINE [Concomitant]
     Indication: ANAESTHESIA REVERSAL
     Dates: start: 20060507, end: 20060507
  7. ATROPINE [Concomitant]
     Indication: ANAESTHESIA REVERSAL
     Dates: start: 20060507, end: 20060507
  8. OXYGEN [Concomitant]
     Indication: DRUG USE FOR UNKNOWN INDICATION
     Route: 055
     Dates: start: 20060507, end: 20060507
  9. RINGER-LACTATE SOLUTION ^FRESENIUS^ [Concomitant]
     Indication: DRUG USE FOR UNKNOWN INDICATION
     Route: 042
     Dates: start: 20060507, end: 20060507
  10. RED BLOOD CELLS [Concomitant]
     Indication: DRUG USE FOR UNKNOWN INDICATION
     Route: 042
     Dates: start: 20060507, end: 20060507
  11. BUPIVACAINE [Concomitant]
     Indication: DRUG USE FOR UNKNOWN INDICATION
     Dates: start: 20060507, end: 20060507

REACTIONS (4)
  - BRADYCARDIA [None]
  - OXYGEN SATURATION DECREASED [None]
  - PULSE ABSENT [None]
  - RESPIRATORY DISORDER [None]
